FAERS Safety Report 25766721 (Version 1)
Quarter: 2025Q3

REPORT INFORMATION
  Report Type: Spontaneous
  Country: US (occurrence: None)
  Receive Date: 20250903
  Receipt Date: 20250903
  Transmission Date: 20251020
  Serious: Yes (Hospitalization)
  Sender: FDA-CTU
  Company Number: None

PATIENT
  Age: 67 Year
  Sex: Female
  Weight: 81.1 kg

DRUGS (3)
  1. TECARTUS [Suspect]
     Active Substance: BREXUCABTAGENE AUTOLEUCEL
  2. FLUDARABINE [Suspect]
     Active Substance: FLUDARABINE PHOSPHATE
  3. CYCLOPHOSPHAMIDE [Suspect]
     Active Substance: CYCLOPHOSPHAMIDE

REACTIONS (13)
  - Cytokine release syndrome [None]
  - Nausea [None]
  - Pain [None]
  - C-reactive protein increased [None]
  - Serum ferritin increased [None]
  - Neurotoxicity [None]
  - Aphasia [None]
  - Aphasia [None]
  - Somnolence [None]
  - Confusional state [None]
  - Depressed level of consciousness [None]
  - Encephalopathy [None]
  - Immune effector cell-associated neurotoxicity syndrome [None]

NARRATIVE: CASE EVENT DATE: 20250625
